FAERS Safety Report 11072256 (Version 1)
Quarter: 2015Q2

REPORT INFORMATION
  Report Type: Spontaneous
  Country: US (occurrence: US)
  Receive Date: 20150428
  Receipt Date: 20150428
  Transmission Date: 20150821
  Serious: Yes (Other)
  Sender: FDA-Public Use
  Company Number: US-WATSON-2015-08534

PATIENT
  Sex: Male

DRUGS (1)
  1. ANDRODERM [Suspect]
     Active Substance: TESTOSTERONE
     Indication: ANDROGEN REPLACEMENT THERAPY
     Dosage: UNK, UNKNOWN
     Route: 065
     Dates: start: 201203, end: 201207

REACTIONS (4)
  - Coronary artery thrombosis [Unknown]
  - Coronary artery disease [Unknown]
  - Coronary artery disease [None]
  - Acute myocardial infarction [Unknown]

NARRATIVE: CASE EVENT DATE: 2012
